FAERS Safety Report 7297898-9 (Version None)
Quarter: 2011Q1

REPORT INFORMATION
  Report Type: 
  Country: None (occurrence: None)
  Receive Date: 20110217
  Receipt Date: 20110112
  Transmission Date: 20110831
  Serious: No
  Sender: FDA-Public Use
  Company Number: US-KINGPHARMUSA00001-K201100062

PATIENT
  Age: 66 Year
  Sex: Female

DRUGS (3)
  1. FLECTOR [Suspect]
     Dosage: 1 PATCH, QHS
     Route: 061
     Dates: start: 20110101
  2. VICODIN [Concomitant]
  3. FLECTOR [Suspect]
     Indication: PAIN
     Dosage: 1 PATCH, Q12H
     Route: 061
     Dates: start: 20110101, end: 20110101

REACTIONS (1)
  - SOMNOLENCE [None]
